FAERS Safety Report 8253617-0 (Version None)
Quarter: 2012Q2

REPORT INFORMATION
  Report Type: 
  Country: None (occurrence: None)
  Receive Date: 20120402
  Receipt Date: 20120308
  Transmission Date: 20120825
  Serious: Yes (Other)
  Sender: FDA-Public Use
  Company Number: US-AMGEN-USASP2012015312

PATIENT
  Sex: Male

DRUGS (2)
  1. ENBREL [Suspect]
     Indication: PSORIATIC ARTHROPATHY
     Dosage: 50 MG, QWK
     Dates: start: 20000101, end: 20110801
  2. ENBREL [Suspect]
     Indication: PSORIASIS

REACTIONS (3)
  - HEPATITIS C [None]
  - PSORIATIC ARTHROPATHY [None]
  - PSORIASIS [None]
